FAERS Safety Report 9629260 (Version 1)
Quarter: 2013Q4

REPORT INFORMATION
  Report Type: Spontaneous
  Country: US (occurrence: US)
  Receive Date: 20131017
  Receipt Date: 20131017
  Transmission Date: 20140711
  Serious: No
  Sender: FDA-Public Use
  Company Number: US-ASTRAZENECA-2013SE73361

PATIENT
  Age: 54 Year
  Sex: Female
  Weight: 64 kg

DRUGS (3)
  1. CRESTOR [Suspect]
     Indication: BLOOD CHOLESTEROL INCREASED
     Route: 048
     Dates: start: 2006
  2. LISINOPRIL [Suspect]
     Indication: HYPERTENSION
     Route: 048
     Dates: start: 2008
  3. LEVEMIR INSULIN [Concomitant]
     Indication: DIABETES MELLITUS

REACTIONS (1)
  - Blood glucose fluctuation [Not Recovered/Not Resolved]
